FAERS Safety Report 9204566 (Version 4)
Quarter: 2013Q4

REPORT INFORMATION
  Report Type: Spontaneous
  Country: IT (occurrence: None)
  Receive Date: 20130329
  Receipt Date: 20131008
  Transmission Date: 20140711
  Serious: Yes (Hospitalization)
  Sender: FDA-Public Use
  Company Number: AUR-APL-2013-02557

PATIENT
  Age: 69 Year
  Sex: Male

DRUGS (1)
  1. LEVOFLOXACIN [Suspect]
     Indication: BRONCHITIS
     Route: 048
     Dates: start: 20130118, end: 20130122

REACTIONS (7)
  - Tendon rupture [None]
  - Pain in extremity [None]
  - Musculoskeletal pain [None]
  - Injury [None]
  - Arthralgia [None]
  - Tendon pain [None]
  - Tendon rupture [None]
